FAERS Safety Report 9877629 (Version 1)
Quarter: 2014Q1

REPORT INFORMATION
  Report Type: Spontaneous
  Country: US (occurrence: None)
  Receive Date: 20140204
  Receipt Date: 20140204
  Transmission Date: 20141002
  Serious: Yes (Other)
  Sender: FDA-Public Use
  Company Number: CPI-5515

PATIENT
  Age: 65 Year
  Sex: Female

DRUGS (3)
  1. NAC/ASIST [Suspect]
     Indication: NEPHROPATHY
     Dosage: 2400 MG IV 1 HR BEFORE
     Route: 042
  2. ISOTONIC SALINE [Concomitant]
  3. IOPROMIDE [Concomitant]

REACTIONS (1)
  - Acute pulmonary oedema [None]
